FAERS Safety Report 21102309 (Version 3)
Quarter: 2022Q3

REPORT INFORMATION
  Report Type: Report from Study
  Country: US (occurrence: US)
  Receive Date: 20220719
  Receipt Date: 20220726
  Transmission Date: 20221027
  Serious: No
  Sender: FDA-Public Use
  Company Number: US-NOVARTISTESTPH-NVSC2022US162719

PATIENT
  Sex: Female

DRUGS (1)
  1. METHOTREXATE [Suspect]
     Active Substance: METHOTREXATE
     Indication: Systemic lupus erythematosus
     Dosage: UNK
     Route: 065

REACTIONS (11)
  - Liver disorder [Unknown]
  - Feeling abnormal [Unknown]
  - Onychomadesis [Unknown]
  - Butterfly rash [Unknown]
  - Arthritis [Unknown]
  - Amnesia [Unknown]
  - Impaired healing [Unknown]
  - Alopecia [Unknown]
  - Fatigue [Unknown]
  - Depression [Unknown]
  - Product use in unapproved indication [Unknown]
